FAERS Safety Report 12998850 (Version 1)
Quarter: 2016Q4

REPORT INFORMATION
  Report Type: Report from Study
  Country: None (occurrence: CA)
  Receive Date: 20161205
  Receipt Date: 20161205
  Transmission Date: 20170207
  Serious: Yes (Hospitalization, Other)
  Sender: FDA-Public Use
  Company Number: CA-ABBVIE-16K-028-1710715-00

PATIENT
  Sex: Male

DRUGS (3)
  1. HUMIRA [Suspect]
     Active Substance: ADALIMUMAB
     Route: 058
     Dates: start: 2016
  2. PREDNISONE. [Suspect]
     Active Substance: PREDNISONE
     Indication: DIARRHOEA HAEMORRHAGIC
     Dosage: 40 MG WEANING
     Route: 048
     Dates: start: 201609
  3. HUMIRA [Suspect]
     Active Substance: ADALIMUMAB
     Indication: COLITIS ULCERATIVE
     Route: 058
     Dates: start: 20160510, end: 2016

REACTIONS (6)
  - Diarrhoea [Recovered/Resolved]
  - Diabetes mellitus [Not Recovered/Not Resolved]
  - Rectal haemorrhage [Recovered/Resolved]
  - Frequent bowel movements [Recovered/Resolved]
  - Dehydration [Recovered/Resolved]
  - Injection site haemorrhage [Not Recovered/Not Resolved]

NARRATIVE: CASE EVENT DATE: 2016
